FAERS Safety Report 6130091-1 (Version None)
Quarter: 2009Q1

REPORT INFORMATION
  Report Type: 
  Country: None (occurrence: None)
  Receive Date: 20090324
  Receipt Date: 20090316
  Transmission Date: 20090719
  Serious: Yes (Hospitalization, Other)
  Sender: FDA-Public Use
  Company Number: FR-BRISTOL-MYERS SQUIBB COMPANY-14548069

PATIENT
  Age: 62 Year
  Sex: Female

DRUGS (3)
  1. TAXOL [Suspect]
     Indication: LUNG ADENOCARCINOMA
     Dosage: INITIATED ON 04-JUL-2008; ON DAY 1,8 AND 15
     Route: 042
     Dates: start: 20080905, end: 20080905
  2. CARBOPLATIN [Suspect]
     Indication: LUNG ADENOCARCINOMA
     Dosage: FROM 18TH APRIL TO 6TH JUN08;312 MG FROM 04-JUL-08 TO 05-SEP-08 (ON DAY 1)
     Route: 042
     Dates: start: 20080418, end: 20080418
  3. GEMCITABINE [Suspect]
     Indication: LUNG ADENOCARCINOMA
     Dosage: STARTED ON 18-APR-2008 TO 06-JUN-2008
     Dates: start: 20080418, end: 20080418

REACTIONS (4)
  - BONE MARROW FAILURE [None]
  - HYPOKALAEMIA [None]
  - PANCYTOPENIA [None]
  - STAPHYLOCOCCAL INFECTION [None]
